FAERS Safety Report 5591310-3 (Version None)
Quarter: 2008Q1

REPORT INFORMATION
  Report Type: 
  Country: None (occurrence: None)
  Receive Date: 20080110
  Receipt Date: 20080110
  Transmission Date: 20080703
  Serious: Yes (Other)
  Sender: FDA-Public Use
  Company Number: None

PATIENT
  Age: 67 Year
  Sex: Female
  Weight: 80.7403 kg

DRUGS (7)
  1. ZYVOX [Suspect]
     Indication: ENTEROCOCCAL INFECTION
     Dosage: 600 MG BID PO
     Route: 048
     Dates: start: 20070119, end: 20070228
  2. ZYVOX [Suspect]
     Indication: WOUND INFECTION BACTERIAL
     Dosage: 600 MG BID PO
     Route: 048
     Dates: start: 20070119, end: 20070228
  3. PRILOSEC [Concomitant]
  4. SYNTHROID [Concomitant]
  5. ACTONEL [Concomitant]
  6. COUMADIN [Concomitant]
  7. KLONAPIN [Concomitant]

REACTIONS (1)
  - PANCYTOPENIA [None]
